FAERS Safety Report 9504808 (Version 1)
Quarter: 2013Q3

REPORT INFORMATION
  Report Type: Spontaneous
  Country: US (occurrence: US)
  Receive Date: 20130906
  Receipt Date: 20130906
  Transmission Date: 20140515
  Serious: No
  Sender: FDA-Public Use
  Company Number: US-009507513-1309USA000510

PATIENT
  Sex: Female

DRUGS (1)
  1. PRINIVIL [Suspect]
     Dosage: UNK
     Route: 048

REACTIONS (2)
  - Upper respiratory tract infection [Not Recovered/Not Resolved]
  - Cough [Not Recovered/Not Resolved]
